FAERS Safety Report 6251153-4 (Version None)
Quarter: 2009Q2

REPORT INFORMATION
  Report Type: 
  Country: None (occurrence: None)
  Receive Date: 20090626
  Receipt Date: 20090622
  Transmission Date: 20091009
  Serious: Yes (Hospitalization)
  Sender: FDA-Public Use
  Company Number: 20085962

PATIENT
  Age: 29 Year
  Sex: Male

DRUGS (2)
  1. BACLOFEN [Suspect]
     Indication: MUSCLE SPASTICITY
     Dosage: 50-100 MCG, DAILY, INTRATHECAL
     Route: 037
     Dates: start: 20080414
  2. TEMELIN [Concomitant]

REACTIONS (5)
  - CATHETER RELATED COMPLICATION [None]
  - CONDITION AGGRAVATED [None]
  - INTRACRANIAL HYPOTENSION [None]
  - MUSCLE SPASTICITY [None]
  - SEROMA [None]
